FAERS Safety Report 5148680-X (Version None)
Quarter: 2006Q4

REPORT INFORMATION
  Report Type: 
  Country: None (occurrence: None)
  Receive Date: 20061103
  Receipt Date: 20061026
  Transmission Date: 20070319
  Serious: Yes (Hospitalization, Other)
  Sender: FDA-Public Use
  Company Number: FRWYE340226OCT06

PATIENT
  Age: 31 Year
  Sex: Male

DRUGS (14)
  1. EFFEXOR [Suspect]
     Indication: DEPRESSION
     Dosage: PROGRESSIVE REINTRODUCTION
     Dates: start: 20060701, end: 20060726
  2. PROGRAF [Concomitant]
  3. INSULIN (INSULIN) [Concomitant]
  4. OMEPRAZOLE [Concomitant]
  5. CORTANCYL (PREDNISONE) [Suspect]
     Dosage: UP TO 1 G TOTAL DAILY, DOSE TAPERED
     Route: 048
     Dates: end: 20060701
  6. CORTANCYL (PREDNISONE) [Suspect]
     Dosage: UP TO 1 G TOTAL DAILY, DOSE TAPERED
     Route: 048
     Dates: start: 20060701
  7. LASIX [Suspect]
     Dosage: 20 MG 1X PER 1 DAY
     Route: 048
     Dates: end: 20060726
  8. CELLCEPT [Concomitant]
  9. POTASSIUM CHLORIDE [Concomitant]
  10. CREON [Concomitant]
  11. DELURSAN (URSODEOXYCHOLIC ACID) [Concomitant]
  12. TOCOPHEROL (TOCOPHEROL) [Concomitant]
  13. A 313 (RETINOL) [Concomitant]
  14. BACTRIM DS [Concomitant]

REACTIONS (11)
  - ACUTE PRERENAL FAILURE [None]
  - BLOOD GLUCOSE INCREASED [None]
  - BLOOD PH INCREASED [None]
  - CONDITION AGGRAVATED [None]
  - DIABETES WITH HYPEROSMOLARITY [None]
  - HYPOCALCAEMIA [None]
  - HYPOKALAEMIA [None]
  - HYPONATRAEMIA [None]
  - NAUSEA [None]
  - PH BODY FLUID INCREASED [None]
  - VOMITING PROJECTILE [None]
